FAERS Safety Report 25707732 (Version 1)
Quarter: 2025Q3

REPORT INFORMATION
  Report Type: Spontaneous
  Country: GB (occurrence: GB)
  Receive Date: 20250820
  Receipt Date: 20250820
  Transmission Date: 20251020
  Serious: Yes (Other)
  Sender: CALLIDITAS THERAPEUTICS AB
  Company Number: GB-STADA-01436483

PATIENT
  Age: 36 Year
  Sex: Male

DRUGS (1)
  1. BUDESONIDE [Suspect]
     Active Substance: BUDESONIDE
     Indication: Product used for unknown indication

REACTIONS (1)
  - Diabetes mellitus [Unknown]
